FAERS Safety Report 24112476 (Version 1)
Quarter: 2024Q3

REPORT INFORMATION
  Report Type: Report from Study
  Country: US (occurrence: None)
  Receive Date: 20240719
  Receipt Date: 20240719
  Transmission Date: 20241017
  Serious: Yes (Hospitalization)
  Sender: ASTRAZENECA
  Company Number: 2019SF67179

PATIENT
  Age: 72 Year
  Sex: Female
  Weight: 97.5 kg

DRUGS (1)
  1. BYDUREON BCISE [Suspect]
     Active Substance: EXENATIDE
     Indication: Type 2 diabetes mellitus
     Route: 058
     Dates: start: 201907

REACTIONS (3)
  - Diverticulitis [Recovered/Resolved]
  - Product dose omission issue [Not Recovered/Not Resolved]
  - Product supply issue [Unknown]
